FAERS Safety Report 21557258 (Version 1)
Quarter: 2022Q4

REPORT INFORMATION
  Report Type: Report from Study
  Country: DE (occurrence: DE)
  Receive Date: 20221105
  Receipt Date: 20221105
  Transmission Date: 20230113
  Serious: Yes (Hospitalization)
  Sender: FDA-Public Use
  Company Number: DE-CELLTRION INC.-2022DE017981

PATIENT

DRUGS (7)
  1. TRASTUZUMAB [Suspect]
     Active Substance: TRASTUZUMAB
     Indication: Breast cancer
     Dosage: LAST DOSE BEFORE SAE 30/03/2022/ROA-20045000
     Route: 065
     Dates: start: 20220330, end: 20220712
  2. PERTUZUMAB [Suspect]
     Active Substance: PERTUZUMAB
     Indication: Breast cancer
     Dosage: LAST DOSE BEFORE SAE 30/03/2022/ROA-20045000
     Route: 065
     Dates: start: 20220330, end: 20220712
  3. CYCLOPHOSPHAMIDE [Suspect]
     Active Substance: CYCLOPHOSPHAMIDE
     Indication: Breast cancer
     Dosage: LAST DOSE BEFORE SAE 09/03/2022/ROA-20045000
     Route: 065
     Dates: start: 20220126, end: 20220309
  4. EPIRUBICIN [Suspect]
     Active Substance: EPIRUBICIN
     Indication: Breast cancer
     Dosage: LAST DOSE BEFORE SAE 09/03/2022/ROA-20045000
     Route: 065
     Dates: start: 20220126, end: 20220309
  5. PACLITAXEL [Suspect]
     Active Substance: PACLITAXEL
     Indication: Breast cancer
     Dosage: LAST DOSE BEFORE SAE 30/03/2022ROA-20045000
     Route: 065
     Dates: start: 20220330, end: 20220728
  6. ATEZOLIZUMAB [Suspect]
     Active Substance: ATEZOLIZUMAB
     Indication: Breast cancer
     Dosage: LAST DOSE BEFORE SAE 30/03/2022/ROA-20045000
     Route: 065
     Dates: start: 20220126, end: 20220406
  7. CARBOPLATIN [Suspect]
     Active Substance: CARBOPLATIN
     Indication: Breast cancer
     Dosage: LAST DOSE BEFORE SAE 30/03/2022/ROA-20045000
     Route: 065
     Dates: start: 20220330, end: 20220706

REACTIONS (2)
  - Hypersensitivity [Recovered/Resolved]
  - Overdose [Unknown]

NARRATIVE: CASE EVENT DATE: 20220330
